FAERS Safety Report 5700838-4 (Version None)
Quarter: 2008Q2

REPORT INFORMATION
  Report Type: 
  Country: None (occurrence: None)
  Receive Date: 20080407
  Receipt Date: 20080327
  Transmission Date: 20081010
  Serious: Yes (Hospitalization, Other)
  Sender: FDA-Public Use
  Company Number: FACT0800066

PATIENT
  Age: 36 Year
  Sex: Male
  Weight: 70 kg

DRUGS (1)
  1. FACTIVE [Suspect]
     Indication: RESPIRATORY TRACT INFECTION
     Dosage: 320 MG, QD, ORAL
     Route: 048
     Dates: end: 20080306

REACTIONS (1)
  - STEVENS-JOHNSON SYNDROME [None]
